FAERS Safety Report 16634127 (Version 1)
Quarter: 2019Q3

REPORT INFORMATION
  Report Type: Spontaneous
  Country: US (occurrence: US)
  Receive Date: 20190725
  Receipt Date: 20190725
  Transmission Date: 20191004
  Serious: No
  Sender: FDA-Public Use
  Company Number: US-AMGEN INC.-USASP2019118577

PATIENT
  Age: 50 Year
  Sex: Female

DRUGS (16)
  1. KETOROLAC [Concomitant]
     Active Substance: KETOROLAC TROMETHAMINE
     Indication: MIGRAINE
     Dosage: 60MG/2MG SYRINGE
  2. COMPAZINE [Concomitant]
     Active Substance: PROCHLORPERAZINE MALEATE
     Indication: MIGRAINE
     Dosage: UNK
  3. MAGNESIUM OXIDE. [Concomitant]
     Active Substance: MAGNESIUM OXIDE
     Indication: MIGRAINE
     Dosage: UNK
  4. TREXIMET [Concomitant]
     Active Substance: NAPROXEN SODIUM\SUMATRIPTAN SUCCINATE
     Indication: MIGRAINE
     Dosage: UNK
  5. AIMOVIG [Suspect]
     Active Substance: ERENUMAB-AOOE
     Indication: MIGRAINE
     Dosage: 140 MILLIGRAM, QMO
     Route: 065
     Dates: start: 2019, end: 201906
  6. IMITREX [Concomitant]
     Active Substance: SUMATRIPTAN SUCCINATE
     Indication: MIGRAINE
     Dosage: 6 MILLIGRAM
  7. ATORVASTATIN [Concomitant]
     Active Substance: ATORVASTATIN
     Indication: MIGRAINE
     Dosage: UNK
  8. PROPANOLOL [PROPRANOLOL] [Concomitant]
     Active Substance: PROPRANOLOL HYDROCHLORIDE
     Indication: MIGRAINE
     Dosage: UNK
  9. WELLBUTRIN [Concomitant]
     Active Substance: BUPROPION HYDROCHLORIDE
     Indication: MIGRAINE
     Dosage: UNK
  10. ABILIFY [Concomitant]
     Active Substance: ARIPIPRAZOLE
     Indication: MIGRAINE
     Dosage: UNK
  11. TIZANIDINE. [Concomitant]
     Active Substance: TIZANIDINE
     Indication: MIGRAINE
     Dosage: UNK
  12. ALMOTRIPTAN. [Concomitant]
     Active Substance: ALMOTRIPTAN
     Indication: MIGRAINE
     Dosage: UNK
  13. DOXEPINE [Concomitant]
     Active Substance: DOXEPIN
     Indication: MIGRAINE
     Dosage: UNK
  14. XANAX [Concomitant]
     Active Substance: ALPRAZOLAM
     Indication: MIGRAINE
     Dosage: UNK
  15. SEROQUEL [Concomitant]
     Active Substance: QUETIAPINE FUMARATE
     Indication: MIGRAINE
     Dosage: UNK
  16. LUNESTA [Concomitant]
     Active Substance: ESZOPICLONE
     Indication: MIGRAINE
     Dosage: UNK

REACTIONS (1)
  - Drug ineffective [Unknown]
